FAERS Safety Report 7235509-9 (Version None)
Quarter: 2011Q1

REPORT INFORMATION
  Report Type: 
  Country: None (occurrence: None)
  Receive Date: 20110120
  Receipt Date: 20110107
  Transmission Date: 20110831
  Serious: Yes (Disabling)
  Sender: FDA-Public Use
  Company Number: FR-ELI_LILLY_AND_COMPANY-FR201101002789

PATIENT
  Sex: Female

DRUGS (3)
  1. NEULASTA [Concomitant]
  2. PEMETREXED [Suspect]
     Indication: LUNG CANCER METASTATIC
  3. MULTIVITAMIN [Concomitant]

REACTIONS (1)
  - BONE PAIN [None]
